FAERS Safety Report 17752292 (Version 1)
Quarter: 2020Q2

REPORT INFORMATION
  Report Type: Spontaneous
  Country: US (occurrence: US)
  Receive Date: 20200506
  Receipt Date: 20200506
  Transmission Date: 20200714
  Serious: No
  Sender: FDA-Public Use
  Company Number: US-ASTRAZENECA-2008BM14285

PATIENT
  Sex: Female

DRUGS (2)
  1. EXENATIDE. [Suspect]
     Active Substance: EXENATIDE
     Route: 065
  2. BYETTA [Concomitant]
     Active Substance: EXENATIDE
     Route: 065

REACTIONS (1)
  - Blood glucose increased [Unknown]
